FAERS Safety Report 6166423-8 (Version None)
Quarter: 2009Q2

REPORT INFORMATION
  Report Type: 
  Country: None (occurrence: None)
  Receive Date: 20090424
  Receipt Date: 20090416
  Transmission Date: 20091009
  Serious: Yes (Hospitalization)
  Sender: FDA-Public Use
  Company Number: JP-EISAI INC.-E3810-02678-SPO-JP

PATIENT
  Age: 43 Year
  Sex: Female

DRUGS (3)
  1. PARIET (RABEPRAZOLE) [Suspect]
     Route: 048
     Dates: start: 20090304, end: 20090308
  2. SAWACILLIN [Suspect]
     Route: 048
     Dates: start: 20090304, end: 20090308
  3. FLAGYL [Suspect]
     Route: 048
     Dates: start: 20090304, end: 20090308

REACTIONS (1)
  - ENTEROCOLITIS HAEMORRHAGIC [None]
